FAERS Safety Report 14019697 (Version 1)
Quarter: 2017Q3

REPORT INFORMATION
  Report Type: Report from Study
  Country: None (occurrence: US)
  Receive Date: 20170928
  Receipt Date: 20170928
  Transmission Date: 20171128
  Serious: Yes (Death, Hospitalization)
  Sender: FDA-Public Use
  Company Number: US-ABBVIE-17P-163-2107949-00

PATIENT
  Age: 78 Year
  Sex: Female
  Weight: 61.2 kg

DRUGS (7)
  1. COMPAZINE [Concomitant]
     Active Substance: PROCHLORPERAZINE MALEATE
     Indication: NAUSEA
  2. ALLOPURINOL. [Concomitant]
     Active Substance: ALLOPURINOL
     Indication: TUMOUR LYSIS SYNDROME
  3. CALCIUM/VITAMIN D [Concomitant]
     Active Substance: CALCIUM\VITAMIN D
     Indication: PRODUCT USED FOR UNKNOWN INDICATION
  4. ALLOPURINOL. [Concomitant]
     Active Substance: ALLOPURINOL
     Indication: PROPHYLAXIS
  5. VENCLEXTA [Suspect]
     Active Substance: VENETOCLAX
     Indication: CHRONIC LYMPHOCYTIC LEUKAEMIA RECURRENT
     Route: 048
     Dates: start: 20170911, end: 20170915
  6. VITAMIN D3 [Concomitant]
     Active Substance: CHOLECALCIFEROL
     Indication: PRODUCT USED FOR UNKNOWN INDICATION
  7. PRILOSEC [Concomitant]
     Active Substance: OMEPRAZOLE MAGNESIUM
     Indication: PRODUCT USED FOR UNKNOWN INDICATION

REACTIONS (16)
  - Asthenia [Fatal]
  - Musculoskeletal pain [Not Recovered/Not Resolved]
  - Hepatic steatosis [Fatal]
  - Splenomegaly [Fatal]
  - Hepatic encephalopathy [Fatal]
  - Blood lactate dehydrogenase increased [Not Recovered/Not Resolved]
  - Hepatic failure [Fatal]
  - Hepatitis acute [Fatal]
  - Nausea [Fatal]
  - Blood albumin decreased [Not Recovered/Not Resolved]
  - Blood calcium increased [Not Recovered/Not Resolved]
  - Mental status changes [Fatal]
  - Lymphadenopathy [Fatal]
  - Liver disorder [Fatal]
  - Leukaemic infiltration [Fatal]
  - Headache [Fatal]

NARRATIVE: CASE EVENT DATE: 201709
